FAERS Safety Report 4461148-9 (Version None)
Quarter: 2004Q3

REPORT INFORMATION
  Report Type: 
  Country: None (occurrence: None)
  Receive Date: 20040923
  Receipt Date: 20040909
  Transmission Date: 20050211
  Serious: Yes (Hospitalization, Other)
  Sender: FDA-Public Use
  Company Number: KII-2001-0013333

PATIENT
  Age: 58 Year
  Sex: Male
  Weight: 68.9 kg

DRUGS (15)
  1. OXYCONTIN [Suspect]
     Indication: CANCER PAIN
     Dosage: SEE IMAGE
     Route: 048
     Dates: start: 20010201, end: 20010301
  2. OXYCONTIN [Suspect]
     Indication: CANCER PAIN
     Dosage: SEE IMAGE
     Route: 048
     Dates: start: 20001106
  3. OXYCONTIN [Suspect]
     Indication: CANCER PAIN
     Dosage: SEE IMAGE
     Route: 048
     Dates: start: 20001106
  4. OXYCONTIN [Suspect]
     Indication: CANCER PAIN
     Dosage: SEE IMAGE
     Route: 048
     Dates: start: 20001120
  5. OXYCONTIN [Suspect]
     Indication: CANCER PAIN
     Dosage: SEE IMAGE
     Route: 048
     Dates: start: 20001128
  6. CELEBREX [Suspect]
     Indication: CANCER PAIN
     Dosage: 200 MG DAILY ORAL
     Route: 048
     Dates: start: 20001106
  7. DOCETAXEL (DOCETAXEL) [Suspect]
     Indication: CHEMOTHERAPY
     Dosage: 20 MG
     Dates: start: 20001101
  8. CARBOPLATIN [Suspect]
     Indication: CHEMOTHERAPY
     Dosage: 200 MG
     Dates: start: 20011101
  9. PERCOCET CR TABLET [Concomitant]
  10. OXYCODONE HCL [Concomitant]
  11. HYDROMORPHONE HCL [Concomitant]
  12. LEVOTHYROXINE (LEVOTHYROXINE SODIUM) [Concomitant]
  13. SENOKOT (DOCUSATE SODIUM, SENNOSIDE A+B) TABLET [Concomitant]
  14. MARINOL [Concomitant]
  15. LAXATIVES [Concomitant]

REACTIONS (49)
  - ABDOMINAL DISCOMFORT [None]
  - ABDOMINAL PAIN UPPER [None]
  - ALANINE AMINOTRANSFERASE INCREASED [None]
  - ANOREXIA [None]
  - ASTHENIA [None]
  - ATELECTASIS [None]
  - BLOOD ALBUMIN DECREASED [None]
  - BLOOD ALKALINE PHOSPHATASE INCREASED [None]
  - BLOOD PRESSURE DIASTOLIC INCREASED [None]
  - BLOOD SODIUM DECREASED [None]
  - BODY TEMPERATURE DECREASED [None]
  - CACHEXIA [None]
  - CANDIDIASIS [None]
  - CARBOHYDRATE ANTIGEN 125 INCREASED [None]
  - CHEILITIS [None]
  - CHEST PAIN [None]
  - CONDITION AGGRAVATED [None]
  - CONFUSIONAL STATE [None]
  - CONSTIPATION [None]
  - DEPRESSION [None]
  - DIARRHOEA [None]
  - DYSPEPSIA [None]
  - FATIGUE [None]
  - HAEMATOCRIT DECREASED [None]
  - HAEMOGLOBIN DECREASED [None]
  - HEART RATE INCREASED [None]
  - HERPES ZOSTER [None]
  - HYPOXIA [None]
  - INADEQUATE ANALGESIA [None]
  - INSOMNIA [None]
  - MALIGNANT NEOPLASM PROGRESSION [None]
  - MALNUTRITION [None]
  - METASTATIC NEOPLASM [None]
  - NAUSEA [None]
  - NIGHTMARE [None]
  - NON-SMALL CELL LUNG CANCER STAGE IV [None]
  - OEDEMA PERIPHERAL [None]
  - PAIN [None]
  - PANIC ATTACK [None]
  - PHARYNGOLARYNGEAL PAIN [None]
  - PLEURAL EFFUSION [None]
  - PLEURITIC PAIN [None]
  - PNEUMONIA [None]
  - RASH [None]
  - RESPIRATORY DISTRESS [None]
  - RESPIRATORY RATE INCREASED [None]
  - VOMITING [None]
  - WEIGHT DECREASED [None]
  - WHITE BLOOD CELL COUNT INCREASED [None]
